FAERS Safety Report 23777587 (Version 1)
Quarter: 2024Q2

REPORT INFORMATION
  Report Type: Report from Study
  Country: DE (occurrence: DE)
  Receive Date: 20240424
  Receipt Date: 20240424
  Transmission Date: 20240715
  Serious: Yes (Other)
  Sender: FDA-Public Use
  Company Number: DE-002147023-NVSC2020DE230544

PATIENT
  Sex: Male

DRUGS (1)
  1. ETANERCEPT [Suspect]
     Active Substance: ETANERCEPT
     Indication: Rheumatoid arthritis
     Dosage: UNK
     Route: 065

REACTIONS (15)
  - Myosclerosis [Not Recovered/Not Resolved]
  - Dizziness [Recovered/Resolved]
  - Rib fracture [Recovered/Resolved]
  - Osteoporosis [Unknown]
  - Erythema [Not Recovered/Not Resolved]
  - COVID-19 [Recovered/Resolved]
  - Dysphagia [Recovered/Resolved]
  - Spinal pain [Not Recovered/Not Resolved]
  - Spinal osteoarthritis [Unknown]
  - Intervertebral disc degeneration [Unknown]
  - Rash [Recovered/Resolved]
  - Conjunctivitis [Recovered/Resolved]
  - Diarrhoea [Recovered/Resolved]
  - Tinea pedis [Unknown]
  - Gastroenteritis [Recovered/Resolved]

NARRATIVE: CASE EVENT DATE: 20191128
